FAERS Safety Report 6859032-6 (Version None)
Quarter: 2010Q3

REPORT INFORMATION
  Report Type: 
  Country: None (occurrence: None)
  Receive Date: 20100719
  Receipt Date: 20080219
  Transmission Date: 20110219
  Serious: No
  Sender: FDA-Public Use
  Company Number: US-PFIZER INC-2008017000

PATIENT
  Sex: Female
  Weight: 86.363 kg

DRUGS (2)
  1. CHANTIX [Suspect]
     Indication: SMOKING CESSATION THERAPY
     Dosage: EVERY DAY
     Route: 048
     Dates: start: 20061001, end: 20070101
  2. VITAMINS [Concomitant]

REACTIONS (6)
  - ANXIETY [None]
  - EMOTIONAL DISORDER [None]
  - NERVOUSNESS [None]
  - PERSONALITY DISORDER [None]
  - THERAPY REGIMEN CHANGED [None]
  - TOBACCO USER [None]
